FAERS Safety Report 8824449 (Version 1)
Quarter: 2012Q4

REPORT INFORMATION
  Report Type: 
  Country: US (occurrence: US)
  Receive Date: 20121004
  Receipt Date: 20121004
  Transmission Date: 20130627
  Serious: Yes (Hospitalization)
  Sender: FDA-Public Use
  Company Number: US-BAYER-2012-101700

PATIENT
  Age: 46 Year
  Sex: Female

DRUGS (8)
  1. YASMIN [Suspect]
     Dosage: UNK
     Dates: start: 20061214, end: 20070425
  2. YAZ [Suspect]
     Indication: MENORRHAGIA
     Dosage: UNK
     Dates: start: 20061214, end: 20070425
  3. ALLEGRA [Concomitant]
  4. AMBIEN CR [Concomitant]
  5. FOLIX [Concomitant]
  6. HEMOCYTE PLUS [Concomitant]
  7. GLUCOPHAGE [Concomitant]
  8. PREVACID [Concomitant]

REACTIONS (2)
  - Pulmonary embolism [Recovered/Resolved]
  - Deep vein thrombosis [None]
